FAERS Safety Report 18122549 (Version 1)
Quarter: 2020Q3

REPORT INFORMATION
  Report Type: Spontaneous
  Country: US (occurrence: US)
  Receive Date: 20200807
  Receipt Date: 20200807
  Transmission Date: 20201103
  Serious: No
  Sender: FDA-Public Use
  Company Number: US-ELI_LILLY_AND_COMPANY-US202008001715

PATIENT
  Sex: Male
  Weight: 127 kg

DRUGS (2)
  1. ADMELOG [Concomitant]
     Active Substance: INSULIN LISPRO
     Indication: PRODUCT USED FOR UNKNOWN INDICATION
     Dosage: 200 U
  2. BASAGLAR [Suspect]
     Active Substance: INSULIN GLARGINE
     Indication: PRODUCT USED FOR UNKNOWN INDICATION
     Dosage: 100 U, UNKNOWN
     Route: 058
     Dates: start: 2019

REACTIONS (3)
  - Weight increased [Unknown]
  - Spinal stenosis [Unknown]
  - Pain [Unknown]

NARRATIVE: CASE EVENT DATE: 2019
